FAERS Safety Report 7236681-7 (Version None)
Quarter: 2011Q1

REPORT INFORMATION
  Report Type: 
  Country: None (occurrence: None)
  Receive Date: 20110112
  Receipt Date: 20110106
  Transmission Date: 20110831
  Serious: Yes (Other)
  Sender: FDA-Public Use
  Company Number: S05-USA-03295-01

PATIENT
  Age: 42 Year
  Sex: Male

DRUGS (6)
  1. LEXAPRO [Suspect]
     Indication: OBSESSIVE-COMPULSIVE DISORDER
     Dosage: 5 MG (5 MG, 1 IN 1 D), ORAL
     Route: 048
  2. CLOZAPINE [Suspect]
     Indication: THINKING ABNORMAL
     Dosage: 50 MG, (150 MG, 1 IN 1 D), ORAL
     Route: 048
     Dates: start: 20050301, end: 20050709
  3. LEXAPRO [Suspect]
     Indication: OBSESSIVE-COMPULSIVE DISORDER
     Dosage: 15 MG (15 MG, 1 IN 1 D), ORAL
     Route: 048
     Dates: start: 20050301, end: 20050101
  4. LEXAPRO [Suspect]
     Indication: OBSESSIVE-COMPULSIVE DISORDER
     Dosage: 10 MG (10 MG, 1 IN 1 D), ORAL
     Route: 048
     Dates: start: 20050101
  5. CLOZAPINE [Suspect]
     Indication: THINKING ABNORMAL
     Dosage: 300 MG (300 MG, 1 IN 1 D), ORAL
     Route: 048
     Dates: start: 20030401, end: 20050301
  6. LEXAPRO [Suspect]
     Indication: OBSESSIVE-COMPULSIVE DISORDER
     Dosage: 30 MG (30 MG, 1 IN 1 D), ORAL
     Route: 048
     Dates: start: 20030401, end: 20050301

REACTIONS (1)
  - TARDIVE DYSKINESIA [None]
